FAERS Safety Report 7110899-6 (Version None)
Quarter: 2010Q4

REPORT INFORMATION
  Report Type: 
  Country: None (occurrence: None)
  Receive Date: 20101118
  Receipt Date: 20101105
  Transmission Date: 20110411
  Serious: Yes (Hospitalization)
  Sender: FDA-Public Use
  Company Number: BE-CELGENEUS-013-C5013-10110809

PATIENT
  Sex: Female

DRUGS (2)
  1. THALIDOMIDE [Suspect]
     Indication: MULTIPLE MYELOMA
     Route: 048
     Dates: start: 20100817
  2. THALIDOMIDE [Suspect]
     Route: 048
     Dates: start: 20101001, end: 20101024

REACTIONS (1)
  - GENERAL PHYSICAL HEALTH DETERIORATION [None]
